FAERS Safety Report 6712322-X (Version None)
Quarter: 2010Q2

REPORT INFORMATION
  Report Type: 
  Country: None (occurrence: None)
  Receive Date: 20100505
  Receipt Date: 20100429
  Transmission Date: 20101027
  Serious: Yes (Hospitalization)
  Sender: FDA-Public Use
  Company Number: US-GILEAD-2010-0028840

PATIENT
  Sex: Female
  Weight: 55 kg

DRUGS (8)
  1. LETAIRIS [Suspect]
     Indication: PULMONARY ARTERIAL HYPERTENSION
     Route: 048
     Dates: start: 20100414
  2. TYVASO [Concomitant]
  3. COUMADIN [Concomitant]
  4. CARDIZEM [Concomitant]
  5. NEXIUM [Concomitant]
  6. REMERON [Concomitant]
  7. ZOLOFT [Concomitant]
  8. CALCIUM [Concomitant]

REACTIONS (2)
  - DYSPNOEA [None]
  - PNEUMONIA [None]
